FAERS Safety Report 18579651 (Version 1)
Quarter: 2020Q4

REPORT INFORMATION
  Report Type: Spontaneous
  Country: US (occurrence: US)
  Receive Date: 20201204
  Receipt Date: 20201204
  Transmission Date: 20210114
  Serious: No
  Sender: FDA-Public Use
  Company Number: US-ASTRAZENECA-2020SF60101

PATIENT
  Age: 68 Year
  Sex: Female

DRUGS (1)
  1. NEXIUM 24HR [Suspect]
     Active Substance: ESOMEPRAZOLE MAGNESIUM
     Indication: DYSPEPSIA
     Dosage: UNKNOWN DOSE AND FREQUENCY
     Route: 048

REACTIONS (17)
  - Blood glucose fluctuation [Unknown]
  - Alopecia [Unknown]
  - Constipation [Recovered/Resolved]
  - Weight increased [Unknown]
  - Fatigue [Unknown]
  - Drug ineffective [Unknown]
  - Diarrhoea [Unknown]
  - Vertigo [Unknown]
  - Memory impairment [Unknown]
  - Vomiting [Unknown]
  - Nausea [Unknown]
  - Tremor [Unknown]
  - Blood magnesium decreased [Unknown]
  - Hypertension [Unknown]
  - Hypotension [Unknown]
  - Bone pain [Unknown]
  - Blister [Unknown]

NARRATIVE: CASE EVENT DATE: 202002
